FAERS Safety Report 4444819-X (Version None)
Quarter: 2004Q3

REPORT INFORMATION
  Report Type: 
  Country: None (occurrence: None)
  Receive Date: 20040907
  Receipt Date: 20040907
  Transmission Date: 20050211
  Serious: No
  Sender: FDA-Public Use
  Company Number: None

PATIENT
  Sex: Female
  Weight: 71.8 kg

DRUGS (8)
  1. AZATHIOPRINE [Suspect]
     Indication: RHEUMATOID ARTHRITIS
     Dosage: 50 MG 1/2 Q DAY
     Dates: start: 20040504, end: 20040827
  2. AZATHIOPRINE [Suspect]
     Dosage: 50 MG 1 Q D AY
     Dates: start: 19990601, end: 20040501
  3. LISINOPRIL [Concomitant]
  4. AMLODIPINE [Concomitant]
  5. FUROSEMIDE [Concomitant]
  6. PROPRANOLOL [Concomitant]
  7. FESO4 [Concomitant]
  8. GLIPIZIDE [Concomitant]

REACTIONS (3)
  - ANAEMIA [None]
  - HEPATIC FUNCTION ABNORMAL [None]
  - NEUTROPENIA [None]
